FAERS Safety Report 5214347-2 (Version None)
Quarter: 2007Q1

REPORT INFORMATION
  Report Type: 
  Country: None (occurrence: None)
  Receive Date: 20070122
  Receipt Date: 20070111
  Transmission Date: 20070707
  Serious: Yes (Other)
  Sender: FDA-Public Use
  Company Number: US-AMGEN-US202880

PATIENT
  Sex: Female
  Weight: 83.5 kg

DRUGS (15)
  1. ARANESP [Suspect]
     Indication: ANAEMIA
     Route: 065
     Dates: start: 20040311
  2. DILANTIN [Concomitant]
     Dates: start: 20030703
  3. LEXAPRO [Concomitant]
     Dates: start: 20030703
  4. LISINOPRIL [Concomitant]
     Dates: start: 20030703
  5. ASPIRIN [Concomitant]
     Dates: start: 20050707
  6. NORVASC [Concomitant]
     Dates: start: 20050707
  7. ACTONEL [Concomitant]
     Dates: start: 20050707
  8. CALTRATE PLUS [Concomitant]
     Dates: start: 20050707
  9. VITAMIN B-12 [Concomitant]
     Dates: start: 20050707
  10. VITAMIN B6 [Concomitant]
     Dates: start: 20050912
  11. FOLIC ACID [Concomitant]
     Dates: start: 20050912
  12. FOLTX [Concomitant]
     Dates: start: 20051024
  13. DETROL [Concomitant]
     Dates: start: 20051219
  14. IRON [Concomitant]
     Route: 048
     Dates: start: 20051219
  15. TUSSIONEX [Concomitant]
     Dates: start: 20060213

REACTIONS (4)
  - HAEMOGLOBIN DECREASED [None]
  - IRON BINDING CAPACITY TOTAL DECREASED [None]
  - MARROW HYPERPLASIA [None]
  - SERUM FERRITIN INCREASED [None]
